FAERS Safety Report 5659292-3 (Version None)
Quarter: 2008Q1

REPORT INFORMATION
  Report Type: 
  Country: None (occurrence: None)
  Receive Date: 20080311
  Receipt Date: 20070710
  Transmission Date: 20080703
  Serious: No
  Sender: FDA-Public Use
  Company Number: US-BAYER-200712184BCC

PATIENT
  Age: 81 Year
  Sex: Female

DRUGS (9)
  1. ALEVE [Suspect]
     Indication: BACK PAIN
     Dosage: TOTAL DAILY DOSE: 880 MG  UNIT DOSE: 220 MG
     Route: 048
  2. BENICAR [Concomitant]
  3. TOPROL [Concomitant]
  4. IMODIUM [Concomitant]
  5. LEXAPRO [Concomitant]
  6. OMEPRAZOLE [Concomitant]
  7. ASCORBIC ACID [Concomitant]
  8. VITAMIN E [Concomitant]
  9. WALGREENS VITAMINS [Concomitant]

REACTIONS (1)
  - GASTRIC ULCER [None]
